FAERS Safety Report 10939973 (Version 1)
Quarter: 2015Q1

REPORT INFORMATION
  Report Type: Spontaneous
  Country: US (occurrence: None)
  Receive Date: 20150212
  Receipt Date: 20150212
  Transmission Date: 20150721
  Serious: No
  Sender: FDA-Public Use
  Company Number: TPA2011A02925

PATIENT
  Age: 81 Year
  Sex: Male
  Weight: 83.46 kg

DRUGS (18)
  1. FLOMAX [Concomitant]
     Active Substance: TAMSULOSIN HYDROCHLORIDE
  2. FUROSEMIDE. [Concomitant]
     Active Substance: FUROSEMIDE
  3. SIMVASTATIN. [Concomitant]
     Active Substance: SIMVASTATIN
  4. MIDORINE (MIDODRINE HYDROCHLORIDE) [Concomitant]
  5. ULORIC [Suspect]
     Active Substance: FEBUXOSTAT
     Indication: GOUT
     Route: 048
     Dates: start: 20110516
  6. METOLAZONE. [Concomitant]
     Active Substance: METOLAZONE
  7. FOSAMAX [Concomitant]
     Active Substance: ALENDRONATE SODIUM
  8. PREDNISONE. [Concomitant]
     Active Substance: PREDNISONE
  9. POTASSIUM [Concomitant]
     Active Substance: POTASSIUM
  10. METOPROLOL [Concomitant]
     Active Substance: METOPROLOL
  11. MIRALAX (MACROGOL) [Concomitant]
  12. VITAMIN B12 [Concomitant]
     Active Substance: CYANOCOBALAMIN
  13. DEPO-TESTOSTERONE [Concomitant]
     Active Substance: TESTOSTERONE CYPIONATE
  14. ASPIRIN. [Concomitant]
     Active Substance: ASPIRIN
  15. OXYCODONE [Concomitant]
     Active Substance: OXYCODONE
  16. CALCIUM [Concomitant]
     Active Substance: CALCIUM
  17. ALLOPURINOL. [Concomitant]
     Active Substance: ALLOPURINOL
  18. FEXOFENADINE [Concomitant]
     Active Substance: FEXOFENADINE\FEXOFENADINE HYDROCHLORIDE

REACTIONS (3)
  - Gingival pain [None]
  - Aphthous stomatitis [None]
  - Expired product administered [None]

NARRATIVE: CASE EVENT DATE: 2011
